FAERS Safety Report 5931643-1 (Version None)
Quarter: 2008Q4

REPORT INFORMATION
  Report Type: 
  Country: None (occurrence: None)
  Receive Date: 20081027
  Receipt Date: 20081020
  Transmission Date: 20090506
  Serious: Yes (Other)
  Sender: FDA-Public Use
  Company Number: BR-JNJFOC-20081004855

PATIENT
  Sex: Female
  Weight: 5.75 kg

DRUGS (1)
  1. MYLICON GOTAS [Suspect]
     Indication: FLATULENCE
     Dosage: 3 DROPS, THREE TIMES A DAY
     Route: 048

REACTIONS (1)
  - HAEMATOCHEZIA [None]
